FAERS Safety Report 9791743 (Version 2)
Quarter: 2014Q1

REPORT INFORMATION
  Report Type: Spontaneous
  Country: JP (occurrence: JP)
  Receive Date: 20140102
  Receipt Date: 20140102
  Transmission Date: 20141002
  Serious: Yes (Death)
  Sender: FDA-Public Use
  Company Number: JP-BEH-2013038259

PATIENT
  Age: 34 Year
  Sex: Female

DRUGS (2)
  1. INTRAVENOUS IMMUNOGLOBULIN [Suspect]
     Indication: MENINGITIS PNEUMOCOCCAL
  2. STEROID [Concomitant]
     Indication: MENINGITIS PNEUMOCOCCAL
     Dosage: HIGH DOSE

REACTIONS (1)
  - Drug ineffective [Fatal]
